FAERS Safety Report 6499936-X (Version None)
Quarter: 2009Q4

REPORT INFORMATION
  Report Type: 
  Country: None (occurrence: None)
  Receive Date: 20091216
  Receipt Date: 20091214
  Transmission Date: 20100525
  Serious: Yes (Other)
  Sender: FDA-Public Use
  Company Number: ES-RANBAXY-2009RR-29642

PATIENT
  Age: 44 Year
  Sex: Female

DRUGS (3)
  1. TOPIRAMATE [Suspect]
     Indication: BULIMIA NERVOSA
     Dosage: 200 MG, UNK
  2. TOPIRAMATE [Suspect]
     Indication: DEPRESSION
  3. PAROXETINE HCL [Concomitant]
     Dosage: UNK MG, UNK

REACTIONS (1)
  - VITAMIN B12 DEFICIENCY [None]
